FAERS Safety Report 9495459 (Version 1)
Quarter: 2013Q3

REPORT INFORMATION
  Report Type: Report from Study
  Country: US (occurrence: US)
  Receive Date: 20130903
  Receipt Date: 20130903
  Transmission Date: 20140515
  Serious: Yes (Hospitalization)
  Sender: FDA-Public Use
  Company Number: US-JNJFOC-20130815139

PATIENT
  Age: 38 Year
  Sex: Male
  Weight: 83.92 kg

DRUGS (2)
  1. REMICADE [Suspect]
     Indication: COLITIS ULCERATIVE
     Route: 042
  2. REMICADE [Suspect]
     Indication: COLITIS ULCERATIVE
     Dosage: ONCE EVERY 6 TO 8 WEEKS
     Route: 042

REACTIONS (2)
  - Colitis ulcerative [Unknown]
  - Weight decreased [Unknown]
